FAERS Safety Report 20833306 (Version 1)
Quarter: 2022Q2

REPORT INFORMATION
  Report Type: 
  Country: None (occurrence: None)
  Receive Date: 20220516
  Receipt Date: 20220516
  Transmission Date: 20220721
  Serious: No
  Sender: FDA-Public Use
  Company Number: US-ROCHE-3093727

PATIENT

DRUGS (4)
  1. BEVACIZUMAB [Suspect]
     Active Substance: BEVACIZUMAB
     Dosage: OVER 30-90 MINUTES ON DAY 1 OF CYCLES 2, 5,6 AND CONTINUING Q3 WEEKS AFTER CYCLE.?ON 06/NOV/2012, LA
     Dates: start: 20120822
  2. PACLITAXEL [Suspect]
     Active Substance: PACLITAXEL
     Dosage: OVER 3HRS ON DAY 1 (CYCLES1-6)
     Dates: start: 20120822
  3. DOCETAXEL [Suspect]
     Active Substance: DOCETAXEL
     Dates: start: 20120822
  4. CARBOPLATIN [Suspect]
     Active Substance: CARBOPLATIN
     Dosage: AUC 6 ON DAY 1(CYCLES1-6)
     Dates: start: 20120822

REACTIONS (3)
  - Anaemia [None]
  - Platelet count decreased [None]
  - Cerebrovascular accident [None]

NARRATIVE: CASE EVENT DATE: 20121125
